FAERS Safety Report 6534348-1 (Version None)
Quarter: 2010Q1

REPORT INFORMATION
  Report Type: 
  Country: None (occurrence: None)
  Receive Date: 20100108
  Receipt Date: 20100108
  Transmission Date: 20100710
  Serious: Yes (Other)
  Sender: FDA-Public Use
  Company Number: None

PATIENT
  Age: 49 Year
  Sex: Male
  Weight: 83.9154 kg

DRUGS (1)
  1. CIPROFLOXACIN HCL [Suspect]
     Indication: ENDODONTIC PROCEDURE
     Dosage: 500 MG 2X DAILY DENTAL
     Route: 004
     Dates: start: 20090526, end: 20090606

REACTIONS (1)
  - TENDON RUPTURE [None]
